FAERS Safety Report 25885704 (Version 2)
Quarter: 2025Q4

REPORT INFORMATION
  Report Type: Spontaneous
  Country: CA (occurrence: CA)
  Receive Date: 20251006
  Receipt Date: 20251124
  Transmission Date: 20260119
  Serious: Yes (Other)
  Sender: PFIZER
  Company Number: CA-PFIZER INC-202500192200

PATIENT
  Age: 27 Year
  Sex: Male

DRUGS (3)
  1. IXIFI [Suspect]
     Active Substance: INFLIXIMAB-QBTX
     Indication: Crohn^s disease
     Dosage: 5 MG/KG, EVERY 4 WEEKS
     Route: 042
     Dates: start: 20250808
  2. METHOTREXATE [Concomitant]
     Active Substance: METHOTREXATE
     Dosage: 1 DF
     Dates: start: 202110
  3. PREDNISONE [Concomitant]
     Active Substance: PREDNISONE
     Dosage: 1 DF
     Dates: start: 202110

REACTIONS (1)
  - Metabolic surgery [Unknown]

NARRATIVE: CASE EVENT DATE: 20250929
